FAERS Safety Report 19884908 (Version 1)
Quarter: 2021Q3

REPORT INFORMATION
  Report Type: Spontaneous
  Country: US (occurrence: US)
  Receive Date: 20210927
  Receipt Date: 20210927
  Transmission Date: 20211014
  Serious: Yes (Hospitalization)
  Sender: FDA-Public Use
  Company Number: None

PATIENT
  Age: 58 Year
  Sex: Female
  Weight: 74.2 kg

DRUGS (9)
  1. MULTIVITAMIN (HEXAVITAMIN) [Concomitant]
  2. FENTANYL 50 MCG/HR [Concomitant]
  3. METHOTREXATE. [Suspect]
     Active Substance: METHOTREXATE
  4. DEXAMETHASONE 0.5 MG/5 ML [Concomitant]
  5. FERROUS SULFATE 325 MG [Concomitant]
  6. MORPHINE 15 MG [Concomitant]
     Active Substance: MORPHINE
  7. METHOTREXATE 25 MG [Concomitant]
     Active Substance: METHOTREXATE
  8. NORTRIPTYLINE (PAMELOR, AVENTYL) 50 MG [Concomitant]
  9. STELARA [Concomitant]
     Active Substance: USTEKINUMAB

REACTIONS (13)
  - Epstein-Barr virus infection [None]
  - Toxicity to various agents [None]
  - Oral pain [None]
  - Bloody discharge [None]
  - Mouth ulceration [None]
  - White blood cell count decreased [None]
  - Oral disorder [None]
  - Hypophagia [None]
  - Odynophagia [None]
  - Pancytopenia [None]
  - Chest pain [None]
  - Microcytic anaemia [None]
  - Thrombocytosis [None]

NARRATIVE: CASE EVENT DATE: 20200225
